FAERS Safety Report 8582400-1 (Version None)
Quarter: 2012Q3

REPORT INFORMATION
  Report Type: 
  Country: None (occurrence: None)
  Receive Date: 20120809
  Receipt Date: 20120803
  Transmission Date: 20120928
  Serious: Yes (Hospitalization)
  Sender: FDA-Public Use
  Company Number: US-GLAXOSMITHKLINE-A0988695A

PATIENT
  Age: 69 Year
  Sex: Female

DRUGS (7)
  1. DIGOXIN [Concomitant]
  2. FLUTICASONE PROPIONATE [Concomitant]
  3. FUROSEMIDE [Concomitant]
  4. OXYGEN [Concomitant]
     Route: 045
  5. FLOLAN [Suspect]
     Indication: PRODUCT USED FOR UNKNOWN INDICATION
     Dosage: 11NGKM CONTINUOUS
     Route: 042
     Dates: start: 20120510
  6. SPIRIVA [Concomitant]
  7. ALBUTEROL [Concomitant]

REACTIONS (3)
  - OEDEMA PERIPHERAL [None]
  - STAPHYLOCOCCAL INFECTION [None]
  - INFUSION SITE INFECTION [None]
